FAERS Safety Report 15041636 (Version 1)
Quarter: 2018Q2

REPORT INFORMATION
  Report Type: Spontaneous
  Country: US (occurrence: US)
  Receive Date: 20180621
  Receipt Date: 20180621
  Transmission Date: 20180711
  Serious: Yes (Other)
  Sender: FDA-Public Use
  Company Number: US-CIPLA LTD.-2018US19181

PATIENT

DRUGS (6)
  1. LETROZOLE. [Suspect]
     Active Substance: LETROZOLE
     Indication: OVARIAN CANCER RECURRENT
     Dosage: UNK
     Route: 065
     Dates: start: 201504, end: 201504
  2. EXEMESTANE. [Suspect]
     Active Substance: EXEMESTANE
     Indication: OVARIAN CANCER RECURRENT
     Dosage: UNK
     Route: 065
     Dates: start: 201504
  3. DOXORUBICIN [Suspect]
     Active Substance: DOXORUBICIN
     Indication: OVARIAN CANCER
     Dosage: UNK, 3 CYCLES
     Route: 065
     Dates: end: 20141202
  4. CARBOPLATIN. [Suspect]
     Active Substance: CARBOPLATIN
     Indication: OVARIAN CANCER
     Dosage: UNK, 6 CYCLES
     Route: 065
     Dates: start: 201304
  5. CARBOPLATIN. [Suspect]
     Active Substance: CARBOPLATIN
     Dosage: UNK, 3 CYCLES
     Route: 065
     Dates: end: 20141202
  6. PACLITAXEL. [Suspect]
     Active Substance: PACLITAXEL
     Indication: OVARIAN CANCER
     Dosage: UNK, 6 CYCLES
     Route: 065
     Dates: start: 201304

REACTIONS (4)
  - Ovarian cancer recurrent [Recovering/Resolving]
  - Malignant neoplasm progression [Recovering/Resolving]
  - Metastases to abdominal cavity [Recovering/Resolving]
  - Metastases to thorax [Recovering/Resolving]

NARRATIVE: CASE EVENT DATE: 201504
